FAERS Safety Report 7512472-4 (Version None)
Quarter: 2011Q2

REPORT INFORMATION
  Report Type: 
  Country: None (occurrence: None)
  Receive Date: 20110531
  Receipt Date: 20110518
  Transmission Date: 20111010
  Serious: Yes (Hospitalization)
  Sender: FDA-Public Use
  Company Number: US-RB-025563-11

PATIENT
  Age: 24 Month
  Sex: Female
  Weight: 11 kg

DRUGS (1)
  1. DELSYM [Suspect]
     Dosage: PATIENT DRANK HALF A BOTTLE
     Route: 048

REACTIONS (3)
  - SOMNOLENCE [None]
  - ERYTHEMA [None]
  - OVERDOSE [None]
